FAERS Safety Report 20940085 (Version 1)
Quarter: 2022Q2

REPORT INFORMATION
  Report Type: Spontaneous
  Country: US (occurrence: US)
  Receive Date: 20220609
  Receipt Date: 20220609
  Transmission Date: 20220721
  Serious: Yes (Other)
  Sender: FDA-Public Use
  Company Number: US-PFIZER INC-202200809779

PATIENT
  Age: 70 Year
  Sex: Male

DRUGS (1)
  1. VORICONAZOLE [Suspect]
     Active Substance: VORICONAZOLE
     Dosage: 50 MG, 2X/DAY(TAKE 5 TABLES BY MOUTH TWICE DAILY, QTY 600)
     Route: 048

REACTIONS (2)
  - Neoplasm malignant [Unknown]
  - Fungal infection [Unknown]
